FAERS Safety Report 6486909-6 (Version None)
Quarter: 2009Q4

REPORT INFORMATION
  Report Type: 
  Country: None (occurrence: None)
  Receive Date: 20091209
  Receipt Date: 20091209
  Transmission Date: 20100525
  Serious: No
  Sender: FDA-Public Use
  Company Number: None

PATIENT
  Age: 63 Year
  Sex: Female
  Weight: 78.0187 kg

DRUGS (1)
  1. COLD REMEDY RAPIDMELTS, CHERRY FLAVOR [Suspect]
     Dosage: TID
     Dates: start: 20091106, end: 20091108

REACTIONS (1)
  - ANOSMIA [None]
